FAERS Safety Report 14268975 (Version 3)
Quarter: 2018Q1

REPORT INFORMATION
  Report Type: Spontaneous
  Country: US (occurrence: US)
  Receive Date: 20171211
  Receipt Date: 20180105
  Transmission Date: 20180508
  Serious: Yes (Hospitalization, Other)
  Sender: FDA-Public Use
  Company Number: US-CONCORDIA PHARMACEUTICALS INC.-GSH201712-006588

PATIENT
  Age: 80 Year
  Sex: Female

DRUGS (9)
  1. SORBITOL. [Suspect]
     Active Substance: SORBITOL
     Indication: LAXATIVE SUPPORTIVE CARE
     Route: 048
  2. DEXTROSE. [Concomitant]
     Active Substance: DEXTROSE
     Indication: HYPERKALAEMIA
     Route: 042
  3. INSULIN [Concomitant]
     Active Substance: INSULIN NOS
     Indication: HYPERKALAEMIA
     Route: 042
  4. KAYEXALATE [Suspect]
     Active Substance: SODIUM POLYSTYRENE SULFONATE
     Indication: HYPERKALAEMIA
     Dosage: TWO DOSES OF 30 G OF ORAL SPS IN SORBITOL (PRESENTATION AS A PREMIXED SOLUTION OF KAYEXALATE 15 G/SO
     Route: 048
  5. PIPERACILLIN/TAZOBACTAM [Suspect]
     Active Substance: PIPERACILLIN SODIUM\TAZOBACTAM SODIUM
     Indication: LEUKOCYTOSIS
     Route: 042
  6. VANCOMYCIN [Suspect]
     Active Substance: VANCOMYCIN
     Indication: BACTERIAL INFECTION
     Route: 042
  7. ALBUTEROL. [Concomitant]
     Active Substance: ALBUTEROL
     Indication: HYPERKALAEMIA
  8. FUROSEMIDE. [Concomitant]
     Active Substance: FUROSEMIDE
     Indication: HYPERKALAEMIA
  9. METRONIDAZOLE. [Suspect]
     Active Substance: METRONIDAZOLE
     Indication: LEUKOCYTOSIS
     Route: 042

REACTIONS (18)
  - Gastrointestinal wall thickening [Unknown]
  - Abdominal tenderness [Unknown]
  - Procalcitonin increased [Unknown]
  - Abdominal pain [Unknown]
  - White blood cell count increased [Unknown]
  - Pyrexia [Unknown]
  - Haematochezia [Unknown]
  - Diarrhoea [Unknown]
  - Pneumatosis intestinalis [Unknown]
  - Enterococcal infection [Recovered/Resolved]
  - Haemoglobin decreased [Unknown]
  - Crystal deposit intestine [Unknown]
  - Drug ineffective [Unknown]
  - Gastrointestinal sounds abnormal [Unknown]
  - Blood lactic acid increased [Unknown]
  - Large intestinal haemorrhage [Recovered/Resolved]
  - Colitis ischaemic [Recovered/Resolved]
  - Excessive granulation tissue [Unknown]
